FAERS Safety Report 8935087 (Version 2)
Quarter: 2013Q1

REPORT INFORMATION
  Report Type: Spontaneous
  Country: US (occurrence: US)
  Receive Date: 20121129
  Receipt Date: 20130110
  Transmission Date: 20140127
  Serious: Yes (Other)
  Sender: FDA-Public Use
  Company Number: US-PFIZER INC-2012297317

PATIENT
  Age: 5 Decade
  Sex: Female

DRUGS (2)
  1. LIPITOR [Suspect]
     Dosage: UNK
  2. METHYLPREDNISOLONE [Concomitant]
     Dosage: UNK
     Route: 008

REACTIONS (4)
  - Spinal operation [Unknown]
  - Accident [Unknown]
  - Sciatica [Unknown]
  - Spinal disorder [Unknown]
